FAERS Safety Report 15680670 (Version 1)
Quarter: 2018Q4

REPORT INFORMATION
  Report Type: Report from Study
  Country: US (occurrence: US)
  Receive Date: 20181203
  Receipt Date: 20181203
  Transmission Date: 20190205
  Serious: Yes (Death)
  Sender: FDA-Public Use
  Company Number: PHHY2018US148566

PATIENT
  Age: 62 Year
  Sex: Male
  Weight: 52.16 kg

DRUGS (1)
  1. LAMPRENE [Suspect]
     Active Substance: CLOFAZIMINE
     Indication: MYCOBACTERIAL INFECTION
     Dosage: 100 MG, QD
     Route: 048
     Dates: start: 20180816

REACTIONS (2)
  - Cardiac arrest [Fatal]
  - Diarrhoea [Unknown]

NARRATIVE: CASE EVENT DATE: 20181022
